FAERS Safety Report 4653335-1 (Version None)
Quarter: 2005Q2

REPORT INFORMATION
  Report Type: 
  Country: None (occurrence: None)
  Receive Date: 20050503
  Receipt Date: 20050420
  Transmission Date: 20051028
  Serious: Yes (Other)
  Sender: FDA-Public Use
  Company Number: 2005063933

PATIENT

DRUGS (1)
  1. ZITHROMAX [Suspect]
     Indication: ILL-DEFINED DISORDER
     Dosage: 500 MG (DAILY), ORAL
     Route: 048
     Dates: start: 20050301

REACTIONS (1)
  - GASTRIC ULCER HAEMORRHAGE [None]
